FAERS Safety Report 4629969-7 (Version None)
Quarter: 2005Q2

REPORT INFORMATION
  Report Type: 
  Country: None (occurrence: None)
  Receive Date: 20050408
  Receipt Date: 20050404
  Transmission Date: 20051028
  Serious: Yes (Life-Threatening)
  Sender: FDA-Public Use
  Company Number: US-BRISTOL-MYERS SQUIBB COMPANY-12920112

PATIENT
  Age: 44 Year
  Sex: Male
  Weight: 91 kg

DRUGS (7)
  1. ATAZANAVIR [Suspect]
     Indication: HIV INFECTION
     Route: 048
     Dates: start: 20031217, end: 20050211
  2. DIDANOSINE [Suspect]
     Indication: HIV INFECTION
     Dosage: AT BEDTIME
     Route: 048
     Dates: start: 20031217, end: 20050211
  3. COMBIVIR [Suspect]
     Dosage: DOSAGE FORM 150/300 MG
     Route: 048
     Dates: start: 20031217, end: 20050211
  4. TRICOR [Concomitant]
     Dates: start: 20031115
  5. HYDROCHLOROTHIAZIDE [Concomitant]
     Dates: start: 20040817
  6. SYNTHROID [Concomitant]
     Dates: start: 19820615
  7. ZANTAC [Concomitant]

REACTIONS (2)
  - BLOOD CHOLESTEROL INCREASED [None]
  - BLOOD TRIGLYCERIDES INCREASED [None]
